FAERS Safety Report 12146081 (Version 2)
Quarter: 2016Q2

REPORT INFORMATION
  Report Type: Report from Study
  Country: BR (occurrence: BR)
  Receive Date: 20160304
  Receipt Date: 20160406
  Transmission Date: 20160815
  Serious: Yes (Death, Hospitalization, Other)
  Sender: FDA-Public Use
  Company Number: BR-ASTELLAS-2016US003623

PATIENT
  Age: 47 Year

DRUGS (7)
  1. PREDNISONE. [Concomitant]
     Active Substance: PREDNISONE
     Indication: RENAL TRANSPLANT
     Dosage: 0.5 MG/KG, ONCE DAILY (MAXIMUM DOSE OF 30 MG) BEGINNING ON DAY 1 AND TAPERED TO 5 MG/DAY BY DAY 45
     Route: 048
  2. GANCICLOVIR. [Concomitant]
     Active Substance: GANCICLOVIR
     Indication: ANTIVIRAL PROPHYLAXIS
     Dosage: UNK UNK, UNKNOWN FREQ.
     Route: 042
  3. SULFAMETHOXAZOLE AND TRIMETHOPRIM [Concomitant]
     Active Substance: SULFAMETHOXAZOLE\TRIMETHOPRIM
     Indication: PROPHYLAXIS
     Dosage: UNK UNK, UNKNOWN FREQ. FOR 6 MONTHS
     Route: 065
  4. NYSTATIN. [Concomitant]
     Active Substance: NYSTATIN
     Indication: PROPHYLAXIS
     Dosage: UNK UNK, UNKNOWN FREQ. FOR 1 MONTH
     Route: 065
  5. METHYLPREDNISOLONE. [Concomitant]
     Active Substance: METHYLPREDNISOLONE
     Indication: RENAL TRANSPLANT
     Dosage: 1 G, TOTAL DOSE, BEFORE GRAFT REVASCULARIZATION
     Route: 040
  6. TACROLIMUS. [Suspect]
     Active Substance: TACROLIMUS
     Indication: RENAL TRANSPLANT
     Dosage: 0.1-0.2 MG/KG/DAY ADJUSTED TO MAINTAIN WHOLE BLOOD CONCENTRATIONS BETWEEN 8 AND 15NG/ML, TWICE DAILY
     Route: 048
     Dates: start: 20081202, end: 20090827
  7. MYCOPHENOLATE [Concomitant]
     Active Substance: MYCOPHENOLIC ACID
     Indication: RENAL TRANSPLANT
     Dosage: 720 MG/DAY, GIVEN IN TWO DIVIDED DOSES
     Route: 065

REACTIONS (4)
  - Septic shock [Fatal]
  - Pneumonia [Fatal]
  - Seminoma [Fatal]
  - Testicular embryonal carcinoma [Fatal]

NARRATIVE: CASE EVENT DATE: 20091202
